FAERS Safety Report 10990819 (Version 3)
Quarter: 2015Q2

REPORT INFORMATION
  Report Type: Spontaneous
  Country: US (occurrence: US)
  Receive Date: 20150406
  Receipt Date: 20150515
  Transmission Date: 20150821
  Serious: Yes (Other)
  Sender: FDA-Public Use
  Company Number: US-BAYER-2015-097034

PATIENT
  Age: 32 Year
  Sex: Female

DRUGS (1)
  1. MIRENA [Suspect]
     Active Substance: LEVONORGESTREL
     Indication: MENORRHAGIA
     Dosage: 20 MCG/24HR, CONT
     Route: 015
     Dates: start: 20070515, end: 20130521

REACTIONS (4)
  - Abortion spontaneous [None]
  - Drug ineffective [None]
  - Benign hydatidiform mole [None]
  - Pregnancy with contraceptive device [None]

NARRATIVE: CASE EVENT DATE: 20110718
